FAERS Safety Report 13517830 (Version 3)
Quarter: 2017Q4

REPORT INFORMATION
  Report Type: Spontaneous
  Country: BR (occurrence: BR)
  Receive Date: 20170505
  Receipt Date: 20171121
  Transmission Date: 20180320
  Serious: Yes (Other)
  Sender: FDA-Public Use
  Company Number: BR-ABBVIE-17P-020-1965906-00

PATIENT
  Age: 64 Year
  Sex: Female
  Weight: 80 kg

DRUGS (2)
  1. SYNTHROID [Suspect]
     Active Substance: LEVOTHYROXINE SODIUM
     Indication: HYPOTHYROIDISM
     Dosage: 75 MCG
     Route: 048
     Dates: end: 201704
  2. SYNTHROID [Suspect]
     Active Substance: LEVOTHYROXINE SODIUM
     Dosage: RETURNED THE TREATMENT WITH SYNTHROID 75 MCG, AROUND LATE JULY/EARLY AUGUST 2
     Route: 048
     Dates: start: 2017, end: 201709

REACTIONS (2)
  - Drug dose omission [Recovered/Resolved]
  - Adrenal disorder [Unknown]

NARRATIVE: CASE EVENT DATE: 201704
